FAERS Safety Report 4876504-4 (Version None)
Quarter: 2006Q1

REPORT INFORMATION
  Report Type: 
  Country: None (occurrence: None)
  Receive Date: 20060110
  Receipt Date: 20020725
  Transmission Date: 20060701
  Serious: Yes (Hospitalization)
  Sender: FDA-Public Use
  Company Number: US-GLAXOSMITHKLINE-A0375692A

PATIENT
  Age: 47 Year
  Sex: Male
  Weight: 81.8 kg

DRUGS (5)
  1. LAMICTAL [Suspect]
     Indication: BIPOLAR DISORDER
     Dosage: 200MG TWICE PER DAY
     Route: 048
     Dates: start: 20010501, end: 20020626
  2. SEROQUEL [Concomitant]
     Indication: BIPOLAR DISORDER
     Dosage: 300MG PER DAY
     Route: 048
     Dates: start: 20020101
  3. INDERAL [Concomitant]
     Indication: TREMOR
     Route: 048
     Dates: start: 20010101
  4. WELLBUTRIN [Concomitant]
     Indication: BIPOLAR DISORDER
     Dosage: 300MG PER DAY
     Route: 048
     Dates: start: 19950101
  5. MYSOLINE [Concomitant]
     Indication: TREMOR
     Route: 048
     Dates: start: 20020101

REACTIONS (11)
  - ABSCESS [None]
  - CYST [None]
  - GLUCOSE TOLERANCE IMPAIRED [None]
  - GROIN INFECTION [None]
  - GROIN PAIN [None]
  - NECROTISING FASCIITIS [None]
  - PURULENT DISCHARGE [None]
  - SCAR [None]
  - SCROTAL INFECTION [None]
  - SKIN INDURATION [None]
  - SOFT TISSUE INFECTION [None]
